FAERS Safety Report 15959921 (Version 2)
Quarter: 2019Q2

REPORT INFORMATION
  Report Type: Report from Study
  Country: CA (occurrence: CA)
  Receive Date: 20190214
  Receipt Date: 20190403
  Transmission Date: 20190711
  Serious: Yes (Other)
  Sender: FDA-Public Use
  Company Number: CA-ALK-ABELLO A/S-2018AA003042

PATIENT

DRUGS (2)
  1. ACARIZAX [Suspect]
     Active Substance: DERMATOPHAGOIDES FARINAE\DERMATOPHAGOIDES PTERONYSSINUS
     Dosage: 12 SQ-HDM
     Dates: start: 201805
  2. ACARIZAX [Suspect]
     Active Substance: DERMATOPHAGOIDES FARINAE\DERMATOPHAGOIDES PTERONYSSINUS
     Indication: MITE ALLERGY
     Dosage: 12 SQ-HDM
     Dates: start: 20180205, end: 201804

REACTIONS (5)
  - Off label use [Unknown]
  - Pneumonia bacterial [Recovered/Resolved]
  - Asthma [Recovered/Resolved]
  - Product use issue [Unknown]
  - Stomatitis [Unknown]

NARRATIVE: CASE EVENT DATE: 20180205
